FAERS Safety Report 8942420 (Version 4)
Quarter: 2013Q2

REPORT INFORMATION
  Report Type: Spontaneous
  Country: US (occurrence: None)
  Receive Date: 20121121
  Receipt Date: 20130429
  Transmission Date: 20140414
  Serious: Yes (Congenital Anomaly)
  Sender: FDA-Public Use
  Company Number: ZYD-12-AE-248

PATIENT
  Age: 2 Month
  Sex: Female
  Weight: 6.24 kg

DRUGS (9)
  1. RIBAVIRIN [Suspect]
     Indication: HEPATITIS C
     Route: 048
     Dates: start: 201107, end: 201201
  2. PEGINTERFERON [Suspect]
     Indication: HEPATITIS C
     Route: 058
     Dates: start: 201107, end: 201201
  3. OMEPRAZOLE [Concomitant]
  4. FERROUS SULFATE [Concomitant]
  5. RANITIDINE [Concomitant]
  6. KLONOPIN [Concomitant]
  7. OXYCODONE [Concomitant]
  8. MIRALAX [Concomitant]
  9. PHENERGAN [Concomitant]

REACTIONS (3)
  - Hypertonia neonatal [None]
  - Maternal drugs affecting foetus [None]
  - Premature baby [None]
